FAERS Safety Report 9267568 (Version 6)
Quarter: 2014Q2

REPORT INFORMATION
  Report Type: Spontaneous
  Country: US (occurrence: US)
  Receive Date: 20130502
  Receipt Date: 20140623
  Transmission Date: 20141212
  Serious: Yes (Disabling)
  Sender: FDA-Public Use
  Company Number: US-MERCK-1304USA017459

PATIENT
  Sex: Male

DRUGS (1)
  1. PROPECIA [Suspect]
     Indication: ANDROGENETIC ALOPECIA
     Dosage: 1 MG, UNK
     Route: 048
     Dates: start: 2000, end: 200210

REACTIONS (19)
  - Libido decreased [Not Recovered/Not Resolved]
  - Erectile dysfunction [Not Recovered/Not Resolved]
  - Semen volume decreased [Not Recovered/Not Resolved]
  - Pelvi-ureteric obstruction [Unknown]
  - Skin papilloma [Unknown]
  - Eyelid disorder [Unknown]
  - Skin plaque [Unknown]
  - Papule [Unknown]
  - Dermatofibroma removal [Unknown]
  - Asthma [Unknown]
  - Fibrous histiocytoma [Unknown]
  - Dyspnoea exertional [Unknown]
  - Sleep apnoea syndrome [Unknown]
  - Obesity [Unknown]
  - Hypertriglyceridaemia [Unknown]
  - Nasal obstruction [Unknown]
  - Chest pain [Unknown]
  - Alcoholism [Recovered/Resolved]
  - Sinus disorder [Not Recovered/Not Resolved]
